FAERS Safety Report 7996223-5 (Version None)
Quarter: 2011Q4

REPORT INFORMATION
  Report Type: 
  Country: None (occurrence: None)
  Receive Date: 20111220
  Receipt Date: 20111216
  Transmission Date: 20120403
  Serious: Yes (Life-Threatening)
  Sender: FDA-Public Use
  Company Number: DE-B.I. PHARMACEUTICALS,INC./RIDGEFIELD-2011-DE-06756DE

PATIENT
  Sex: Female

DRUGS (4)
  1. AZATHIOPRINE [Concomitant]
     Indication: MUSCULAR WEAKNESS
     Dosage: 50 MG
     Route: 048
  2. MESTINON [Concomitant]
     Indication: MUSCULAR WEAKNESS
     Dosage: 50 MG
     Route: 048
  3. PRADAXA [Suspect]
     Indication: ATRIAL FIBRILLATION
     Dosage: 220 MG
     Route: 048
     Dates: end: 20111202
  4. ESCITALOPRAM [Concomitant]
     Indication: DEPRESSION
     Dosage: 20 MG
     Route: 048

REACTIONS (2)
  - COMA [None]
  - BASAL GANGLIA HAEMORRHAGE [None]
